FAERS Safety Report 19467569 (Version 1)
Quarter: 2021Q2

REPORT INFORMATION
  Report Type: Spontaneous
  Country: US (occurrence: US)
  Receive Date: 20210625
  Receipt Date: 20210625
  Transmission Date: 20210717
  Serious: Yes (Hospitalization)
  Sender: FDA-Public Use
  Company Number: None

PATIENT
  Age: 77 Year
  Sex: Female

DRUGS (17)
  1. ESTRACE VAG CRE [Concomitant]
  2. PEPCID [Concomitant]
     Active Substance: FAMOTIDINE
  3. VITAMIN B12 [Concomitant]
     Active Substance: CYANOCOBALAMIN
  4. VITAMIN D3 [Concomitant]
     Active Substance: CHOLECALCIFEROL
  5. FORTEO [Suspect]
     Active Substance: TERIPARATIDE
     Indication: SENILE OSTEOPOROSIS
     Dosage: ?          OTHER DOSE:0.08ML (20MCG);?
     Route: 058
     Dates: start: 20190924
  6. STIMULANT [Concomitant]
     Active Substance: UNSPECIFIED INGREDIENT
  7. IRON [Concomitant]
     Active Substance: IRON
  8. ROSUVASTATIN. [Concomitant]
     Active Substance: ROSUVASTATIN
  9. METRONIDAZOL [Concomitant]
     Active Substance: METRONIDAZOLE
  10. CIPROFLOXACN [Concomitant]
     Active Substance: CIPROFLOXACIN
  11. ENOXAPARIN [Concomitant]
     Active Substance: ENOXAPARIN
  12. ACETAMIN [Concomitant]
     Active Substance: ACETAMINOPHEN
  13. GABAPENTIN. [Concomitant]
     Active Substance: GABAPENTIN
  14. HYDROMORPHON [Concomitant]
     Active Substance: HYDROMORPHONE
  15. LISINOPRIL. [Concomitant]
     Active Substance: LISINOPRIL
  16. SYNTHROID [Concomitant]
     Active Substance: LEVOTHYROXINE SODIUM
  17. THERAMINE [Concomitant]
     Active Substance: .GAMMA.-AMINOBUTYRIC ACID

REACTIONS (1)
  - Knee arthroplasty [None]

NARRATIVE: CASE EVENT DATE: 20210611
